FAERS Safety Report 9036655 (Version 1)
Quarter: 2013Q1

REPORT INFORMATION
  Report Type: Spontaneous
  Country: US (occurrence: None)
  Receive Date: 20130114
  Receipt Date: 20130114
  Transmission Date: 20140127
  Serious: Yes (Other)
  Sender: FDA-Public Use
  Company Number: 2013-00007

PATIENT
  Age: 53 Year
  Sex: Male
  Weight: 77.11 kg

DRUGS (1)
  1. ZICAM ALLERGY RELIEF NASAL GEL [Suspect]
     Indication: NASOPHARYNGITIS
     Route: 045
     Dates: end: 20130103

REACTIONS (1)
  - Blood pressure increased [None]
